FAERS Safety Report 19592896 (Version 1)
Quarter: 2021Q3

REPORT INFORMATION
  Report Type: Spontaneous
  Country: US (occurrence: US)
  Receive Date: 20210722
  Receipt Date: 20210722
  Transmission Date: 20211014
  Serious: Yes (Other)
  Sender: FDA-Public Use
  Company Number: None

PATIENT
  Age: 57 Year
  Sex: Female

DRUGS (4)
  1. COLLOIDAL SILVER TOPICAL GEL [Concomitant]
  2. TRIAMCINOLONE [Suspect]
     Active Substance: TRIAMCINOLONE
     Indication: DERMATITIS ATOPIC
     Dates: start: 20150301, end: 20210412
  3. BENADRYL [Concomitant]
     Active Substance: DIPHENHYDRAMINE HYDROCHLORIDE
  4. ANTISEPTIC [Concomitant]
     Active Substance: CHLOROXYLENOL

REACTIONS (9)
  - Erythema [None]
  - Blindness [None]
  - Depression [None]
  - Condition aggravated [None]
  - Drug ineffective [None]
  - Skin weeping [None]
  - Feeling hot [None]
  - Eczema [None]
  - Pain [None]

NARRATIVE: CASE EVENT DATE: 20210412
